FAERS Safety Report 6358113-3 (Version None)
Quarter: 2009Q3

REPORT INFORMATION
  Report Type: 
  Country: None (occurrence: None)
  Receive Date: 20090916
  Receipt Date: 20090909
  Transmission Date: 20100115
  Serious: Yes (Hospitalization)
  Sender: FDA-Public Use
  Company Number: US-BAYER-200928488NA

PATIENT
  Age: 50 Year
  Sex: Male
  Weight: 91 kg

DRUGS (6)
  1. NEXAVAR [Suspect]
     Indication: HEPATIC NEOPLASM MALIGNANT
     Dosage: TOTAL DAILY DOSE: 400 MG  UNIT DOSE: 200 MG
     Route: 048
     Dates: start: 20090707, end: 20090726
  2. NEXAVAR [Suspect]
     Dosage: UNIT DOSE: 200 MG
     Route: 048
     Dates: start: 20090818, end: 20090828
  3. TEKTURNA [Concomitant]
     Dates: start: 20090101
  4. BENICAR HCT [Concomitant]
     Dosage: AS USED: 40/12.5 MG
     Dates: start: 20090101
  5. CLONIDINE [Concomitant]
  6. DILTIAZEM [Concomitant]

REACTIONS (1)
  - HEPATIC FAILURE [None]
